FAERS Safety Report 8779576 (Version 1)
Quarter: 2012Q4

REPORT INFORMATION
  Report Type: 
  Country: CA (occurrence: CA)
  Receive Date: 20120912
  Receipt Date: 20120912
  Transmission Date: 20130627
  Serious: Yes (Other)
  Sender: FDA-Public Use
  Company Number: CA-PFIZER INC-2012222554

PATIENT
  Age: 35 Year
  Sex: Female

DRUGS (2)
  1. PRISTIQ [Suspect]
     Dosage: 50 mg, UNK
     Dates: start: 201204
  2. SEROQUEL XR [Concomitant]
     Dosage: 150 mg, UNK

REACTIONS (4)
  - Bipolar disorder [Not Recovered/Not Resolved]
  - Blindness unilateral [Not Recovered/Not Resolved]
  - Vision blurred [Not Recovered/Not Resolved]
  - Visual impairment [Not Recovered/Not Resolved]
